FAERS Safety Report 9129616 (Version 2)
Quarter: 2013Q1

REPORT INFORMATION
  Report Type: Spontaneous
  Country: US (occurrence: US)
  Receive Date: 20130228
  Receipt Date: 20130322
  Transmission Date: 20140127
  Serious: Yes (Hospitalization, Other)
  Sender: FDA-Public Use
  Company Number: US-ELI_LILLY_AND_COMPANY-US201302007800

PATIENT
  Age: 68 Year
  Sex: Male

DRUGS (5)
  1. CIALIS [Suspect]
     Indication: BENIGN PROSTATIC HYPERPLASIA
     Dosage: 5 MG, QD
     Route: 048
     Dates: start: 20120517
  2. CIALIS [Suspect]
     Dosage: 15 MG, PRN
     Route: 048
  3. CIALIS [Suspect]
     Dosage: 20 MG, PRN
     Route: 048
  4. CELEXA [Concomitant]
     Dosage: 20 MG, QD
  5. CLONOPIN [Concomitant]
     Dosage: 0.5 MG, QD

REACTIONS (3)
  - Pulmonary embolism [Recovering/Resolving]
  - Drug ineffective [Recovered/Resolved]
  - Drug ineffective [Unknown]
